FAERS Safety Report 8492695-0 (Version None)
Quarter: 2012Q3

REPORT INFORMATION
  Report Type: 
  Country: None (occurrence: None)
  Receive Date: 20120706
  Receipt Date: 20120626
  Transmission Date: 20120928
  Serious: Yes (Hospitalization)
  Sender: FDA-Public Use
  Company Number: IT-CELGENEUS-083-50794-12063460

PATIENT
  Sex: Male

DRUGS (4)
  1. PANTOPRAZOLE [Concomitant]
     Dosage: 40 MILLIGRAM
     Route: 048
  2. VIDAZA [Suspect]
     Dosage: 100 MILLIGRAM
     Route: 058
     Dates: start: 20120529, end: 20120604
  3. PREDNISONE [Concomitant]
     Dosage: 25 MILLIGRAM
     Route: 048
  4. TRANEXAMIC ACID [Concomitant]
     Dosage: 3 GRAM
     Route: 048

REACTIONS (1)
  - APPENDICITIS [None]
